FAERS Safety Report 7562540-6 (Version None)
Quarter: 2011Q2

REPORT INFORMATION
  Report Type: 
  Country: None (occurrence: None)
  Receive Date: 20110621
  Receipt Date: 20110621
  Transmission Date: 20111010
  Serious: Yes (Hospitalization)
  Sender: FDA-Public Use
  Company Number: None

PATIENT
  Sex: Female
  Weight: 67.1324 kg

DRUGS (1)
  1. FOSAMAX [Suspect]
     Indication: OSTEOPENIA
     Dosage: 1 PILL PER WEEK PO
     Route: 048
     Dates: start: 20110306, end: 20110529

REACTIONS (9)
  - DYSPEPSIA [None]
  - BACK PAIN [None]
  - CHOLELITHIASIS [None]
  - CHEST PAIN [None]
  - FAECES PALE [None]
  - HEPATOMEGALY [None]
  - MALAISE [None]
  - CHROMATURIA [None]
  - BILE DUCT OBSTRUCTION [None]
